FAERS Safety Report 5408904-8 (Version None)
Quarter: 2007Q3

REPORT INFORMATION
  Report Type: 
  Country: None (occurrence: None)
  Receive Date: 20070808
  Receipt Date: 20070724
  Transmission Date: 20080115
  Serious: Yes (Other)
  Sender: FDA-Public Use
  Company Number: SK-PFIZER INC-2007064541

PATIENT
  Sex: Male

DRUGS (1)
  1. CLINDAMYCIN HCL [Suspect]
     Indication: SKIN ULCER
     Route: 048
     Dates: start: 20070320, end: 20070323

REACTIONS (1)
  - TOXIC SKIN ERUPTION [None]
